FAERS Safety Report 25988595 (Version 1)
Quarter: 2025Q4

REPORT INFORMATION
  Report Type: Spontaneous
  Country: US (occurrence: US)
  Receive Date: 20251103
  Receipt Date: 20251103
  Transmission Date: 20260117
  Serious: Yes (Hospitalization)
  Sender: Phathom Pharmaceuticals
  Company Number: US-PHATHOM PHARMACEUTICALS INC.-2025PHT03154

PATIENT
  Age: 72 Year
  Sex: Female

DRUGS (9)
  1. VOQUEZNA [Suspect]
     Active Substance: VONOPRAZAN FUMARATE
     Indication: Diarrhoea
     Dosage: 20 MG
     Route: 048
  2. VALSARTAN [Concomitant]
     Active Substance: VALSARTAN
  3. LASIX [Concomitant]
     Active Substance: FUROSEMIDE
  4. BIOTIN [Concomitant]
     Active Substance: BIOTIN
  5. VITAMINS WITH MINERALS [Concomitant]
     Active Substance: MINERALS\VITAMINS
  6. FERROUS SULFATE [Concomitant]
     Active Substance: FERROUS SULFATE
  7. POTASSIUM CHLORIDE [Concomitant]
     Active Substance: POTASSIUM CHLORIDE
  8. CELLCEPT [Concomitant]
     Active Substance: MYCOPHENOLATE MOFETIL
  9. OFEV [Concomitant]
     Active Substance: NINTEDANIB

REACTIONS (2)
  - Hospitalisation [Not Recovered/Not Resolved]
  - Off label use [Unknown]
